FAERS Safety Report 5092717-3 (Version None)
Quarter: 2006Q3

REPORT INFORMATION
  Report Type: 
  Country: None (occurrence: None)
  Receive Date: 20060727
  Receipt Date: 20060531
  Transmission Date: 20061208
  Serious: Yes (Other)
  Sender: FDA-Public Use
  Company Number: 2006071395

PATIENT
  Sex: Male
  Weight: 73.0291 kg

DRUGS (7)
  1. LYRICA [Suspect]
     Indication: NEUROPATHY PERIPHERAL
     Dosage: 450 MG (150 MG, 3 IN 1 D)
     Dates: start: 20060101
  2. GLUCOPHAGE [Concomitant]
  3. NORVASC [Concomitant]
  4. ZETIA [Concomitant]
  5. ACTOS [Concomitant]
  6. LEXAPRO [Concomitant]
  7. LORAZEPAM [Concomitant]

REACTIONS (1)
  - DRUG INEFFECTIVE [None]
